APPROVED DRUG PRODUCT: INDOMETHACIN
Active Ingredient: INDOMETHACIN
Strength: 50MG
Dosage Form/Route: CAPSULE;ORAL
Application: A205215 | Product #002
Applicant: JUBILANT GENERICS LTD
Approved: Aug 25, 2017 | RLD: No | RS: No | Type: DISCN